FAERS Safety Report 9048713 (Version 1)
Quarter: 2013Q1

REPORT INFORMATION
  Report Type: Spontaneous
  Country: US (occurrence: None)
  Receive Date: 20130130
  Receipt Date: 20130130
  Transmission Date: 20140127
  Serious: Yes (Hospitalization)
  Sender: FDA-Public Use
  Company Number: None

PATIENT
  Age: 74 Year
  Sex: Female
  Weight: 79.1 kg

DRUGS (14)
  1. COUMADIN? [Suspect]
     Route: 048
  2. ASPIRIN [Suspect]
     Indication: CEREBROVASCULAR ACCIDENT
     Dosage: LET
     Route: 048
  3. CELEBREX [Suspect]
     Route: 048
  4. ZOCOR [Concomitant]
  5. TYLENOL [Concomitant]
  6. AMLODIPINE [Concomitant]
  7. CELEXA [Concomitant]
  8. B12 [Concomitant]
  9. TORSEMIDE [Concomitant]
  10. PROTONIX [Concomitant]
  11. TOPIRAMATE [Concomitant]
  12. CARAFATE [Concomitant]
  13. VIT D3 [Concomitant]
  14. OXYBUTYNIN [Concomitant]

REACTIONS (5)
  - Dyspnoea [None]
  - Gastrointestinal haemorrhage [None]
  - Diverticulum [None]
  - International normalised ratio increased [None]
  - Anaemia [None]
